FAERS Safety Report 5395342-X (Version None)
Quarter: 2007Q3

REPORT INFORMATION
  Report Type: 
  Country: None (occurrence: None)
  Receive Date: 20070724
  Receipt Date: 20070712
  Transmission Date: 20080115
  Serious: Yes (Death, Other)
  Sender: FDA-Public Use
  Company Number: HQWYE600517APR07

PATIENT
  Sex: Male
  Weight: 88.98 kg

DRUGS (10)
  1. EFFEXOR XR [Suspect]
     Indication: DEPRESSION
     Dosage: OVERDOSE AMOUNT UNKNOWN
     Dates: start: 20070201, end: 20070201
  2. EFFEXOR XR [Suspect]
     Indication: SCHIZOPHRENIA
  3. LIPITOR [Concomitant]
  4. ATIVAN [Concomitant]
     Dosage: 1 MG (3 TIMES A DAY AS NEEDED)
  5. RISPERDAL CONSTA [Concomitant]
  6. ASCORBIC ACID/CALCIUM PANTOTHENATE/CYANOCOBALAMIN/NICOTINAMIDE/PYRIDOX [Concomitant]
     Dosage: UNKNOWN DOSE DAILY
  7. DEPAKOTE [Concomitant]
     Dosage: 1000 MG IN AM, 1500 MG IN PM
  8. WELLBUTRIN - SLOW RELEASE [Concomitant]
  9. CLOZAPINE [Concomitant]
  10. TYLENOL (CAPLET) [Concomitant]
     Dosage: 650 MG AS NEEDED

REACTIONS (6)
  - ANTIDEPRESSANT DRUG LEVEL INCREASED [None]
  - DIARRHOEA [None]
  - DYSPNOEA [None]
  - GASTROINTESTINAL DISORDER [None]
  - OVERDOSE [None]
  - VOMITING [None]
